FAERS Safety Report 11239204 (Version 1)
Quarter: 2015Q3

REPORT INFORMATION
  Report Type: Report from Study
  Country: IT (occurrence: IT)
  Receive Date: 20150706
  Receipt Date: 20150706
  Transmission Date: 20151125
  Serious: Yes (Hospitalization)
  Sender: FDA-Public Use
  Company Number: IT-ROCHE-ITM201505IM015755

PATIENT
  Age: 55 Year
  Sex: Male
  Weight: 87 kg

DRUGS (3)
  1. BIFRIL [Concomitant]
     Active Substance: ZOFENOPRIL
     Dosage: 28 X 30 MG IN BLISTER PACK (PVDC/PVC/AL)
     Route: 048
  2. METOCLOPRAMIDE. [Concomitant]
     Active Substance: METOCLOPRAMIDE
     Route: 065
  3. PIRFENIDONE [Suspect]
     Active Substance: PIRFENIDONE
     Indication: IDIOPATHIC PULMONARY FIBROSIS
     Dosage: 267 MG BLISTER PACK (PVC/PE/PCTFE/ALL) 252 (4X63)
     Route: 048
     Dates: start: 20141112, end: 20150417

REACTIONS (2)
  - Dyspnoea [Unknown]
  - Condition aggravated [Unknown]

NARRATIVE: CASE EVENT DATE: 20150417
